FAERS Safety Report 24037515 (Version 1)
Quarter: 2024Q3

REPORT INFORMATION
  Report Type: Spontaneous
  Country: CN (occurrence: CN)
  Receive Date: 20240702
  Receipt Date: 20240702
  Transmission Date: 20241017
  Serious: Yes (Other)
  Sender: STRIDES
  Company Number: CN-STRIDES ARCOLAB LIMITED-2024SP007710

PATIENT

DRUGS (5)
  1. ROSUVASTATIN [Suspect]
     Active Substance: ROSUVASTATIN
     Indication: Product used for unknown indication
     Dosage: UNK (PATIENT^S MOTHER RECEIVED 10MG OF ROSUVASTATIN AS AN EMPIRICAL THERAPY)
     Route: 064
  2. ASPIRIN [Suspect]
     Active Substance: ASPIRIN
     Indication: Product used for unknown indication
     Dosage: UNK (PATIENT^S MOTHER RECEIVED 300MG OF ASPIRIN AS AN EMPIRICAL THERAPY)
     Route: 064
  3. TICAGRELOR [Suspect]
     Active Substance: TICAGRELOR
     Indication: Product used for unknown indication
     Dosage: UNK (PATIENT^S MOTHER RECEIVED 180MG AS AN EMPIRICAL THERAPY)
     Route: 064
  4. FUROSEMIDE [Suspect]
     Active Substance: FUROSEMIDE
     Indication: Product used for unknown indication
     Dosage: UNK (PATIENT^S MOTHER RECEIVED IV FUROSEMIDE 20MG FOR THE CORRECTION OF BLOOD LACTIC ACID LEVEL)
     Route: 064
  5. SODIUM BICARBONATE [Suspect]
     Active Substance: SODIUM BICARBONATE
     Indication: Product used for unknown indication
     Dosage: UNK (PATIENT^S MOTHER RECEIVED SODIUM BICARBONATE 90MEQ FOR CORRECTION OF BLOOD LACTIC ACID LEVEL)
     Route: 064

REACTIONS (2)
  - Low birth weight baby [Unknown]
  - Foetal exposure during pregnancy [Unknown]
